FAERS Safety Report 7342048-3 (Version None)
Quarter: 2011Q1

REPORT INFORMATION
  Report Type: 
  Country: None (occurrence: None)
  Receive Date: 20110309
  Receipt Date: 20110228
  Transmission Date: 20110831
  Serious: Yes (Hospitalization)
  Sender: FDA-Public Use
  Company Number: US-ASTRAZENECA-2011SE11043

PATIENT
  Age: 75 Year
  Sex: Female

DRUGS (2)
  1. RESPIRATORY MEDICATION [Concomitant]
  2. SYMBICORT [Suspect]
     Route: 055

REACTIONS (1)
  - OESOPHAGEAL RUPTURE [None]
